FAERS Safety Report 6245076-4 (Version None)
Quarter: 2009Q2

REPORT INFORMATION
  Report Type: 
  Country: None (occurrence: None)
  Receive Date: 20090625
  Receipt Date: 20090616
  Transmission Date: 20091009
  Serious: Yes (Hospitalization)
  Sender: FDA-Public Use
  Company Number: US-JNJFOC-20090605296

PATIENT
  Age: 9 Year
  Sex: Female
  Weight: 29.5 kg

DRUGS (12)
  1. INFLIXIMAB [Suspect]
     Route: 042
  2. INFLIXIMAB [Suspect]
     Indication: INFLAMMATORY BOWEL DISEASE
     Route: 042
  3. HUMIRA [Concomitant]
  4. 5-AMINOSALICYLIC ACID [Concomitant]
     Route: 048
  5. PREDNISONE [Concomitant]
  6. METRONIDAZOLE [Concomitant]
  7. ZYRTEC [Concomitant]
  8. PREVACID [Concomitant]
  9. FISH OIL [Concomitant]
  10. MULTIPLE VITAMIN [Concomitant]
  11. IRON [Concomitant]
  12. ENTERAL FEEDING [Concomitant]

REACTIONS (2)
  - CROHN'S DISEASE [None]
  - CRYPTOSPORIDIOSIS INFECTION [None]
